FAERS Safety Report 24669133 (Version 1)
Quarter: 2024Q4

REPORT INFORMATION
  Report Type: Spontaneous
  Country: NL (occurrence: NL)
  Receive Date: 20241127
  Receipt Date: 20241127
  Transmission Date: 20250114
  Serious: Yes (Hospitalization)
  Sender: AMGEN
  Company Number: NL-ROCHE-10000131886

PATIENT
  Age: 55 Year
  Sex: Female

DRUGS (4)
  1. BEVACIZUMAB [Suspect]
     Active Substance: BEVACIZUMAB
     Indication: Carcinoid tumour pulmonary
     Dosage: 1200 MILLIGRAM (5 CYCLESLAST DOSE ON 21-OCT-2024)
     Route: 040
     Dates: start: 20240802
  2. ATEZOLIZUMAB [Suspect]
     Active Substance: ATEZOLIZUMAB
     Indication: Carcinoid tumour pulmonary
     Dosage: 5 CYCLESLAST DOSE ON 21-OCT-2024
     Route: 040
     Dates: start: 20240802
  3. PACLITAXEL [Suspect]
     Active Substance: PACLITAXEL
     Indication: Carcinoid tumour pulmonary
     Dosage: 4 CYCLESLAST DOSE ON 04-OCT-2024
     Route: 040
     Dates: start: 20240802
  4. CARBOPLATIN [Suspect]
     Active Substance: CARBOPLATIN
     Indication: Carcinoid tumour pulmonary
     Dosage: 4 CYCLESLAST DOSE ON 04-OCT-2024
     Route: 040
     Dates: start: 20240802

REACTIONS (2)
  - Abdominal pain upper [Not Recovered/Not Resolved]
  - Off label use [Unknown]

NARRATIVE: CASE EVENT DATE: 20241111
